FAERS Safety Report 4562212-6 (Version None)
Quarter: 2005Q1

REPORT INFORMATION
  Report Type: 
  Country: None (occurrence: None)
  Receive Date: 20050121
  Receipt Date: 20050110
  Transmission Date: 20050727
  Serious: Yes (Hospitalization, Other)
  Sender: FDA-Public Use
  Company Number: 2005009641

PATIENT
  Sex: Female

DRUGS (3)
  1. NEURONTIN [Suspect]
     Indication: MULTIPLE SCLEROSIS
  2. NEURONTIN [Suspect]
     Indication: PAIN
  3. ANOVLAR (ETHINYLESTRADIOL, NORETHISTERONE ACETATE) [Suspect]
     Indication: CONTRACEPTION
     Dosage: ORAL
     Route: 048
     Dates: end: 20040101

REACTIONS (13)
  - ACNE [None]
  - BONE PAIN [None]
  - DRUG INEFFECTIVE [None]
  - DRUG TOLERANCE [None]
  - FALL [None]
  - INADEQUATE ANALGESIA [None]
  - MULTIPLE SCLEROSIS [None]
  - SCAR [None]
  - SCRATCH [None]
  - SPINAL DISORDER [None]
  - THROMBOSIS [None]
  - VAGINAL NEOPLASM [None]
  - WEIGHT DECREASED [None]
